FAERS Safety Report 11454828 (Version 1)
Quarter: 2015Q3

REPORT INFORMATION
  Report Type: Spontaneous
  Country: FR (occurrence: FR)
  Receive Date: 20150903
  Receipt Date: 20150903
  Transmission Date: 20151125
  Serious: Yes (Hospitalization)
  Sender: FDA-Public Use
  Company Number: FR-GUERBET LLC-1041611

PATIENT
  Age: 73 Year
  Sex: Female

DRUGS (16)
  1. ZESTRIL [Concomitant]
     Active Substance: LISINOPRIL
     Route: 048
     Dates: start: 20140101, end: 20150622
  2. PERINDOPRIL [Concomitant]
     Active Substance: PERINDOPRIL
  3. ATENOLOL. [Concomitant]
     Active Substance: ATENOLOL
     Route: 048
  4. LEVOTHYROXINE SODIUM. [Concomitant]
     Active Substance: LEVOTHYROXINE SODIUM
     Route: 048
  5. ACCUPAQUE(IOHEXOL) [Concomitant]
     Route: 042
  6. DIOSMINE [Concomitant]
     Active Substance: HESPERIDIN
     Route: 048
  7. LASIX [Concomitant]
     Active Substance: FUROSEMIDE
     Route: 042
     Dates: start: 20150623, end: 20150624
  8. LORAZEPAM. [Concomitant]
     Active Substance: LORAZEPAM
     Route: 048
  9. CLARITHROMYCINE [Concomitant]
     Active Substance: CLARITHROMYCIN
     Dates: start: 20150624
  10. DOTAREM [Suspect]
     Active Substance: GADOTERATE MEGLUMINE
     Indication: NUCLEAR MAGNETIC RESONANCE IMAGING
     Route: 042
     Dates: start: 20150625
  11. TORASEMIDE SANDOZ(TORASEMIDE) [Concomitant]
  12. DIGOXINE [Concomitant]
     Active Substance: DIGOXIN
     Dates: start: 20150621
  13. PIPERACILLIN AND TAZOBACTAM [Concomitant]
     Active Substance: PIPERACILLIN SODIUM\TAZOBACTAM SODIUM
     Dates: start: 20150624
  14. ENALAPRIL ACTAVIS(ENALAPRIL MALEATE) [Concomitant]
     Route: 048
     Dates: start: 20150623, end: 20150626
  15. METOPROLOL [Concomitant]
     Active Substance: METOPROLOL
     Dates: start: 20150621
  16. TAHOR(ATORVASTATIN CALCIUM) [Concomitant]
     Route: 048

REACTIONS (1)
  - Renal failure [Recovered/Resolved]

NARRATIVE: CASE EVENT DATE: 20150625
